FAERS Safety Report 12572073 (Version 1)
Quarter: 2016Q3

REPORT INFORMATION
  Report Type: Report from Study
  Country: US (occurrence: US)
  Receive Date: 20160719
  Receipt Date: 20160719
  Transmission Date: 20161109
  Serious: Yes (Other)
  Sender: FDA-Public Use
  Company Number: US-GILEAD-2016-0223265

PATIENT
  Age: 77 Year
  Sex: Female
  Weight: 78.46 kg

DRUGS (9)
  1. PROTONIX                           /00661201/ [Concomitant]
     Active Substance: OMEPRAZOLE
  2. AMBRISENTAN [Suspect]
     Active Substance: AMBRISENTAN
     Indication: PULMONARY HYPERTENSION
     Dosage: 10 MG, QD
     Route: 065
  3. UPTRAVI [Suspect]
     Active Substance: SELEXIPAG
     Indication: PRODUCT USED FOR UNKNOWN INDICATION
     Dosage: 400 UG, BID
     Route: 065
  4. VITAMIN B12 [Concomitant]
     Active Substance: CYANOCOBALAMIN
  5. LEVOTHYROXINE. [Concomitant]
     Active Substance: LEVOTHYROXINE
  6. ADCIRCA [Concomitant]
     Active Substance: TADALAFIL
  7. ARMOUR THYROID [Concomitant]
     Active Substance: THYROID, PORCINE
  8. TORSEMIDE. [Concomitant]
     Active Substance: TORSEMIDE
  9. AMBRISENTAN [Suspect]
     Active Substance: AMBRISENTAN
     Indication: CARDIAC FAILURE CONGESTIVE

REACTIONS (6)
  - Heart rate increased [Unknown]
  - Pulse abnormal [Unknown]
  - Hypersomnia [Unknown]
  - Cardiac fibrillation [Unknown]
  - Dyspnoea [Unknown]
  - Fatigue [Unknown]
